FAERS Safety Report 7057150-3 (Version None)
Quarter: 2010Q4

REPORT INFORMATION
  Report Type: 
  Country: None (occurrence: None)
  Receive Date: 20101022
  Receipt Date: 20101012
  Transmission Date: 20110411
  Serious: Yes (Disabling)
  Sender: FDA-Public Use
  Company Number: PHFR2010GB03378

PATIENT
  Sex: Female
  Weight: 54.3 kg

DRUGS (11)
  1. ACLASTA [Suspect]
     Dosage: 5 MG, QD
     Route: 042
     Dates: start: 20060701, end: 20090101
  2. ASPIRIN [Concomitant]
     Route: 048
  3. CALCICHEW [Concomitant]
     Route: 048
  4. CINNARIZINE [Concomitant]
     Dosage: 15 MG, UNK
     Route: 048
  5. BISOPROLOL [Concomitant]
     Dosage: 3.75 MG, UNK
     Route: 048
  6. DOMPERIDONE [Concomitant]
     Dosage: 10 MG, UNK
     Route: 048
  7. NITROGLYCERIN [Concomitant]
     Dosage: UNK
  8. ISOSORBIDE MONONITRATE [Concomitant]
     Dosage: 60 MG, UNK
  9. LACTULOSE [Concomitant]
  10. LANSOPRAZOLE [Concomitant]
     Dosage: 30 MG, UNK
  11. NICORANDIL [Concomitant]
     Dosage: 30 MG, BID

REACTIONS (1)
  - DIVERTICULITIS [None]
